FAERS Safety Report 10552027 (Version 1)
Quarter: 2014Q4

REPORT INFORMATION
  Report Type: Spontaneous
  Country: US (occurrence: None)
  Receive Date: 20141027
  Receipt Date: 20141027
  Transmission Date: 20150529
  Serious: Yes (Other)
  Sender: FDA-Public Use
  Company Number: DSC201407-000005

PATIENT
  Age: 1 Day
  Sex: Male
  Weight: 1.55 kg

DRUGS (6)
  1. DEXTROSE (DEXTROSE) [Concomitant]
  2. AMPICILLIN (AMPICILLIN) [Concomitant]
     Active Substance: AMPICILLIN
  3. LUCINACTANT INHALATION (LUCINACTANT) [Suspect]
     Active Substance: 1-PALMITOYL-2-OLEOYL-SN-GLYCERO-3-(PHOSPHO-RAC-(1-GLYCEROL)), SODIUM SALT\COLFOSCERIL PALMITATE\PALMITIC ACID\SINAPULTIDE
     Indication: NEONATAL RESPIRATORY DISTRESS SYNDROME
     Dates: start: 20140713, end: 20140713
  4. GENTAMICIN. [Concomitant]
     Active Substance: GENTAMICIN
  5. CAFFEINE (CAFFEINE) [Concomitant]
     Active Substance: CAFFEINE
  6. INTRALIPID (INTRALIPID) [Concomitant]

REACTIONS (3)
  - Pneumothorax [None]
  - Medical device complication [None]
  - Apnoea [None]

NARRATIVE: CASE EVENT DATE: 20140713
